FAERS Safety Report 4632947-5 (Version None)
Quarter: 2005Q2

REPORT INFORMATION
  Report Type: 
  Country: None (occurrence: None)
  Receive Date: 20050412
  Receipt Date: 20050316
  Transmission Date: 20051028
  Serious: Yes (Life-Threatening)
  Sender: FDA-Public Use
  Company Number: JP-ROCHE-399197

PATIENT
  Age: 61 Year
  Sex: Male

DRUGS (3)
  1. TAMIFLU [Suspect]
     Indication: INFLUENZA
     Route: 048
     Dates: start: 20050222, end: 20050222
  2. ERYTHROCIN STEARATE [Concomitant]
     Indication: DRUG USE FOR UNKNOWN INDICATION
     Route: 048
     Dates: start: 20050322, end: 20050322
  3. MUCODYNE [Concomitant]
     Indication: DRUG USE FOR UNKNOWN INDICATION
     Route: 048
     Dates: start: 20050322, end: 20050322

REACTIONS (2)
  - DEPRESSED LEVEL OF CONSCIOUSNESS [None]
  - LYMPHOCYTE STIMULATION TEST POSITIVE [None]
